FAERS Safety Report 5521108-3 (Version None)
Quarter: 2007Q4

REPORT INFORMATION
  Report Type: 
  Country: None (occurrence: None)
  Receive Date: 20071119
  Receipt Date: 20071114
  Transmission Date: 20080405
  Serious: Yes (Other)
  Sender: FDA-Public Use
  Company Number: BR-ASTRAZENECA-2007UW26422

PATIENT
  Age: 79 Year
  Sex: Male
  Weight: 73 kg

DRUGS (3)
  1. ZOLADEX [Suspect]
     Indication: PROSTATE CANCER
     Dosage: SOMETIMES 3.6 MG, SOMETIMES 10.8 MG
     Route: 058
     Dates: start: 19970101
  2. LIPLESS [Concomitant]
     Route: 048
     Dates: start: 19970101
  3. EULEXIN [Concomitant]
     Indication: NEOPLASM MALIGNANT
     Route: 048
     Dates: start: 20071001

REACTIONS (5)
  - BONE PAIN [None]
  - DIARRHOEA [None]
  - DRUG INEFFECTIVE [None]
  - METASTASES TO BONE [None]
  - PROSTATIC SPECIFIC ANTIGEN INCREASED [None]
